FAERS Safety Report 16217633 (Version 2)
Quarter: 2019Q2

REPORT INFORMATION
  Report Type: Spontaneous
  Country: US (occurrence: US)
  Receive Date: 20190419
  Receipt Date: 20190528
  Transmission Date: 20190711
  Serious: No
  Sender: FDA-Public Use
  Company Number: US-THERAPEUTICSMD-2019TMD00715

PATIENT
  Sex: Female
  Weight: 87.08 kg

DRUGS (2)
  1. SYNTHROID [Concomitant]
     Active Substance: LEVOTHYROXINE SODIUM
     Dosage: 125 ^MG^ 1X/DAY, IN THE MORNING
  2. IMVEXXY [Suspect]
     Active Substance: ESTRADIOL
     Indication: VULVOVAGINAL DRYNESS
     Dosage: 10 ?G, 1X/DAY, IN THE EVENING
     Route: 067

REACTIONS (2)
  - Off label use [Recovered/Resolved]
  - Palpitations [Recovered/Resolved]
